FAERS Safety Report 6183008-8 (Version None)
Quarter: 2009Q2

REPORT INFORMATION
  Report Type: 
  Country: None (occurrence: None)
  Receive Date: 20090507
  Receipt Date: 20090428
  Transmission Date: 20091009
  Serious: Yes (Death, Hospitalization)
  Sender: FDA-Public Use
  Company Number: DE-AVENTIS-200910892DE

PATIENT
  Age: 60 Year
  Sex: Female
  Weight: 87 kg

DRUGS (5)
  1. TAXOTERE [Suspect]
     Route: 041
     Dates: start: 20090312, end: 20090312
  2. FLUOROURACIL [Concomitant]
     Route: 042
     Dates: start: 20090108, end: 20090219
  3. EPIRUBICIN [Concomitant]
     Route: 042
     Dates: start: 20090108, end: 20090219
  4. CYCLOPHOSPHAMIDE [Concomitant]
     Route: 042
     Dates: start: 20090108, end: 20090219
  5. FORTECORTIN                        /00016001/ [Concomitant]
     Dates: start: 20090311, end: 20090313

REACTIONS (13)
  - ACUTE HEPATIC FAILURE [None]
  - AGRANULOCYTOSIS [None]
  - CARDIOMYOPATHY [None]
  - DISSEMINATED INTRAVASCULAR COAGULATION [None]
  - ENTEROCOLITIS [None]
  - GASTROINTESTINAL NECROSIS [None]
  - NEUTROPENIA [None]
  - PERITONITIS [None]
  - PLEURAL EFFUSION [None]
  - RENAL FAILURE ACUTE [None]
  - RESPIRATORY FAILURE [None]
  - SEPTIC SHOCK [None]
  - TACHYARRHYTHMIA [None]
